FAERS Safety Report 14349633 (Version 1)
Quarter: 2018Q1

REPORT INFORMATION
  Report Type: Spontaneous
  Country: US (occurrence: US)
  Receive Date: 20180103
  Receipt Date: 20180103
  Transmission Date: 20180509
  Serious: Yes (Other)
  Sender: FDA-Public Use
  Company Number: None

PATIENT
  Sex: Female
  Weight: 56.25 kg

DRUGS (1)
  1. PROHANCE [Suspect]
     Active Substance: GADOTERIDOL
     Route: 042

REACTIONS (8)
  - Peripheral coldness [None]
  - Pain [None]
  - Toxicity to various agents [None]
  - Hyperhidrosis [None]
  - Hyperaemia [None]
  - Renal failure [None]
  - Vascular pain [None]
  - Angina pectoris [None]

NARRATIVE: CASE EVENT DATE: 20150223
